FAERS Safety Report 13705094 (Version 1)
Quarter: 2017Q2

REPORT INFORMATION
  Report Type: Spontaneous
  Country: US (occurrence: US)
  Receive Date: 20170629
  Receipt Date: 20170629
  Transmission Date: 20170830
  Serious: No
  Sender: FDA-Public Use
  Company Number: None

PATIENT
  Age: 68 Year
  Sex: Male
  Weight: 76.5 kg

DRUGS (1)
  1. BYDUREON [Suspect]
     Active Substance: EXENATIDE
     Indication: TYPE 2 DIABETES MELLITUS
     Dosage: ?          OTHER STRENGTH:MG;QUANTITY:1 INJECTION(S);OTHER FREQUENCY:ONCE-WEEKLY;OTHER ROUTE:INJECTED INTO STOMACH?

REACTIONS (6)
  - Affective disorder [None]
  - Vomiting [None]
  - Restlessness [None]
  - Vision blurred [None]
  - Ocular hyperaemia [None]
  - Anger [None]

NARRATIVE: CASE EVENT DATE: 20170629
